FAERS Safety Report 4716455-9 (Version None)
Quarter: 2005Q3

REPORT INFORMATION
  Report Type: 
  Country: None (occurrence: None)
  Receive Date: 20050719
  Receipt Date: 20030409
  Transmission Date: 20060218
  Serious: Yes (Hospitalization)
  Sender: FDA-Public Use
  Company Number: NO-SP-E2003-00319

PATIENT
  Age: 22 Year
  Sex: Male

DRUGS (4)
  1. RABIES IMOVAX [Suspect]
     Indication: ACCIDENTAL EXPOSURE
     Route: 065
     Dates: start: 20030303, end: 20030310
  2. RABIES IMOVAX [Suspect]
     Route: 065
     Dates: start: 20030303, end: 20030310
  3. PASTEURIZED HUMAN RABIES IMMUNOGLOBULIN [Suspect]
     Indication: ACCIDENTAL EXPOSURE
     Route: 065
     Dates: start: 20030303
  4. PASTEURIZED HUMAN RABIES IMMUNOGLOBULIN [Suspect]
     Route: 065
     Dates: start: 20030303

REACTIONS (8)
  - COUGH [None]
  - HYPERHIDROSIS [None]
  - PALLOR [None]
  - PYREXIA [None]
  - RHINORRHOEA [None]
  - SWELLING [None]
  - TACHYCARDIA [None]
  - URTICARIA [None]
